FAERS Safety Report 8428695-6 (Version None)
Quarter: 2012Q2

REPORT INFORMATION
  Report Type: 
  Country: None (occurrence: None)
  Receive Date: 20120606
  Receipt Date: 20120518
  Transmission Date: 20120825
  Serious: Yes (Hospitalization)
  Sender: FDA-Public Use
  Company Number: PC0000736

PATIENT
  Age: 60 Year
  Sex: Male
  Weight: 72.5755 kg

DRUGS (7)
  1. SYNTHROID [Concomitant]
  2. ASPIRIN [Concomitant]
  3. FLUDEOXYGLUCOSE [Suspect]
     Indication: POSITRON EMISSION TOMOGRAM
     Dosage: 12.9MCI IV 042
     Route: 042
     Dates: start: 20120518
  4. TRAMADOL HCL [Concomitant]
  5. PROBIOTIC [Concomitant]
  6. MULTI-VITAMIN [Concomitant]
  7. CALCIUM CARBONATE [Concomitant]

REACTIONS (7)
  - OEDEMA [None]
  - PRURITUS [None]
  - RASH [None]
  - URTICARIA [None]
  - FLUSHING [None]
  - HYPOTENSION [None]
  - TACHYCARDIA [None]
